FAERS Safety Report 21982033 (Version 1)
Quarter: 2023Q1

REPORT INFORMATION
  Report Type: Spontaneous
  Country: US (occurrence: US)
  Receive Date: 20230213
  Receipt Date: 20230213
  Transmission Date: 20230418
  Serious: Yes (Hospitalization, Other)
  Sender: FDA-Public Use
  Company Number: US-BRISTOL-MYERS SQUIBB COMPANY-2023-020082

PATIENT
  Age: 71 Year
  Sex: Female
  Weight: 102.06 kg

DRUGS (1)
  1. ORENCIA [Suspect]
     Active Substance: ABATACEPT
     Indication: Psoriatic arthropathy
     Dosage: DOSE : 1000MG;     FREQ : MONTHLY
     Route: 042

REACTIONS (2)
  - Coccidioidomycosis [Unknown]
  - Dyspnoea [Unknown]
